FAERS Safety Report 10011520 (Version 1)
Quarter: 2014Q1

REPORT INFORMATION
  Report Type: Spontaneous
  Country: US (occurrence: US)
  Receive Date: 20140314
  Receipt Date: 20140314
  Transmission Date: 20141002
  Serious: Yes (Other)
  Sender: FDA-Public Use
  Company Number: US-PFIZER INC-2014075161

PATIENT
  Age: 47 Year
  Sex: Female
  Weight: 76.64 kg

DRUGS (2)
  1. CHANTIX [Suspect]
     Indication: SMOKING CESSATION THERAPY
     Dosage: 0.5 MG, 2X/DAY
     Dates: start: 2013, end: 2013
  2. CHANTIX [Suspect]
     Dosage: 1 MG, UNK
     Dates: start: 2013, end: 2014

REACTIONS (3)
  - Pneumonia [Unknown]
  - Bronchitis [Unknown]
  - Cough [Unknown]
